FAERS Safety Report 10113175 (Version 2)
Quarter: 2015Q1

REPORT INFORMATION
  Report Type: Other
  Country: US (occurrence: US)
  Receive Date: 20140425
  Receipt Date: 20150127
  Transmission Date: 20150720
  Serious: Yes (Hospitalization, Other)
  Sender: FDA-Public Use
  Company Number: US-GSKPPD-2014GSK013753

PATIENT
  Age: 76 Year
  Sex: Male

DRUGS (5)
  1. NIFEDIPINE ER [Concomitant]
     Active Substance: NIFEDIPINE
  2. WARFARIN [Concomitant]
     Active Substance: WARFARIN
  3. NITROGLYCERIN. [Concomitant]
     Active Substance: NITROGLYCERIN
  4. METOPROLOL [Concomitant]
     Active Substance: METOPROLOL
  5. AVANDIA [Suspect]
     Active Substance: ROSIGLITAZONE MALEATE
     Indication: DIABETES MELLITUS
     Dosage: DATES OF AVANDIA USE COULD NOT BE CONFIRMED IN RECORDS REVIEWED..
     Route: 048

REACTIONS (3)
  - Myocardial infarction [Unknown]
  - Cerebrovascular accident [Unknown]
  - Cardiac failure congestive [Recovered/Resolved]

NARRATIVE: CASE EVENT DATE: 20040810
